FAERS Safety Report 15720433 (Version 5)
Quarter: 2023Q1

REPORT INFORMATION
  Report Type: Spontaneous
  Country: PT (occurrence: PT)
  Receive Date: 20181213
  Receipt Date: 20230130
  Transmission Date: 20230418
  Serious: Yes (Other)
  Sender: FDA-Public Use
  Company Number: PT-002147023-PHHY2018PT173231

PATIENT
  Age: 56 Year
  Sex: Female

DRUGS (10)
  1. METFORMIN HYDROCHLORIDE\SITAGLIPTIN PHOSPHATE [Suspect]
     Active Substance: METFORMIN HYDROCHLORIDE\SITAGLIPTIN PHOSPHATE
     Indication: Diabetes mellitus
     Dosage: 1 DOSAGE FORM (50/1000 MILLIGRAM), DAILY
     Route: 048
  2. METFORMIN HYDROCHLORIDE\SITAGLIPTIN PHOSPHATE [Suspect]
     Active Substance: METFORMIN HYDROCHLORIDE\SITAGLIPTIN PHOSPHATE
     Dosage: 1 DOSAGE FORM (50/1000 MILLIGRAM), DAILY
     Route: 048
     Dates: start: 201703
  3. METFORMIN HYDROCHLORIDE\SITAGLIPTIN PHOSPHATE [Suspect]
     Active Substance: METFORMIN HYDROCHLORIDE\SITAGLIPTIN PHOSPHATE
     Dosage: 2 DOSAGE FORM (2X 50/1000 MILLIGRAM) DAILY
     Route: 048
  4. ENALAPRIL MALEATE\LERCANIDIPINE HYDROCHLORIDE [Suspect]
     Active Substance: ENALAPRIL MALEATE\LERCANIDIPINE HYDROCHLORIDE
     Indication: Hypertension
     Dosage: 20 MG, ONCE A DAY (ID)
     Route: 065
     Dates: end: 201610
  5. ENALAPRIL MALEATE\LERCANIDIPINE HYDROCHLORIDE [Suspect]
     Active Substance: ENALAPRIL MALEATE\LERCANIDIPINE HYDROCHLORIDE
     Dosage: 20 MG, ONCE A DAY (ID)
     Route: 065
     Dates: start: 201703
  6. NEBIVOLOL [Suspect]
     Active Substance: NEBIVOLOL
     Indication: Hypertension
     Dosage: 5 MG, ONCE A DAY (ID)
     Route: 065
  7. NEBIVOLOL [Suspect]
     Active Substance: NEBIVOLOL
     Dosage: 5 MG, ONCE A DAY (ID)
     Route: 065
     Dates: start: 201703
  8. FLUOXETINE [Suspect]
     Active Substance: FLUOXETINE HYDROCHLORIDE
     Dosage: 20 MG, DAILY (ID)
     Route: 065
  9. ROSUVASTATIN [Suspect]
     Active Substance: ROSUVASTATIN
     Dosage: 5 MG, DAILY (ID)
     Route: 065
  10. FENOFIBRATE [Suspect]
     Active Substance: FENOFIBRATE
     Dosage: 145 MILLIGRAM, ONCE A DAY (ALSO REPORTED AS 150 MG, ID)

REACTIONS (3)
  - Diabetes mellitus inadequate control [Recovering/Resolving]
  - Treatment noncompliance [Unknown]
  - Inappropriate schedule of product administration [Unknown]
